FAERS Safety Report 8419056-4 (Version None)
Quarter: 2012Q2

REPORT INFORMATION
  Report Type: 
  Country: None (occurrence: None)
  Receive Date: 20120607
  Receipt Date: 20120605
  Transmission Date: 20120825
  Serious: Yes (Hospitalization)
  Sender: FDA-Public Use
  Company Number: PHEH2012US011369

PATIENT
  Sex: Female

DRUGS (5)
  1. DIOVAN HCT [Suspect]
     Indication: BLOOD PRESSURE
     Dosage: 120/78 MG, QD
     Route: 048
  2. DIOVAN HCT [Suspect]
     Dosage: 160/25 MG, QD
  3. HYDROCHLOROTHIAZDE TAB [Concomitant]
     Indication: FLUID RETENTION
     Dosage: 25 MG, OCCASIONAL
     Route: 048
  4. POTASSIUM [Concomitant]
     Indication: SUPPLEMENTATION THERAPY
     Dosage: 4 TABLETS (20 MG) DAILY
     Route: 048
  5. PROVIGIL [Concomitant]
     Indication: NARCOLEPSY
     Dosage: 200 MG, QD
     Route: 048

REACTIONS (2)
  - FALL [None]
  - BLOOD PRESSURE INCREASED [None]
